FAERS Safety Report 13685081 (Version 1)
Quarter: 2017Q2

REPORT INFORMATION
  Report Type: Spontaneous
  Country: US (occurrence: US)
  Receive Date: 20170623
  Receipt Date: 20170623
  Transmission Date: 20170830
  Serious: No
  Sender: FDA-Public Use
  Company Number: US-INTERPRAG-PM-OCA2017-00334

PATIENT

DRUGS (5)
  1. OCALIVA [Suspect]
     Active Substance: OBETICHOLIC ACID
     Indication: BILIARY CIRRHOSIS PRIMARY
     Dosage: 5 MG, QD
     Route: 048
     Dates: start: 201612
  2. URSO [Suspect]
     Active Substance: URSODIOL
     Dosage: 900 MG, QD
     Dates: end: 20170125
  3. OCALIVA [Suspect]
     Active Substance: OBETICHOLIC ACID
     Dosage: 5 MG, QD
     Route: 048
     Dates: start: 20170125
  4. OCALIVA [Suspect]
     Active Substance: OBETICHOLIC ACID
     Dosage: 5 MG, QOD
     Route: 048
     Dates: end: 20170125
  5. URSO [Suspect]
     Active Substance: URSODIOL
     Dosage: 600 MG, QD
     Dates: start: 20170125

REACTIONS (6)
  - Scratch [Unknown]
  - Pruritus [Unknown]
  - Contusion [Unknown]
  - Erythema [Unknown]
  - Sleep disorder [Unknown]
  - Pyrexia [Unknown]
